FAERS Safety Report 8117425-3 (Version None)
Quarter: 2012Q1

REPORT INFORMATION
  Report Type: 
  Country: None (occurrence: None)
  Receive Date: 20120207
  Receipt Date: 20120124
  Transmission Date: 20120608
  Serious: Yes (Other)
  Sender: FDA-Public Use
  Company Number: AR-AMGEN-ARGSP2012005328

PATIENT
  Age: 52 Year
  Sex: Female
  Weight: 55 kg

DRUGS (2)
  1. ENBREL [Suspect]
     Indication: ANKYLOSING SPONDYLITIS
     Dosage: 50 MG, WEEKLY
     Route: 058
     Dates: start: 20111211, end: 20120119
  2. DICLOFENAC [Concomitant]
     Dosage: 75 MG, UNK
     Route: 048

REACTIONS (2)
  - PANNICULITIS [None]
  - INJECTION SITE REACTION [None]
